FAERS Safety Report 10979717 (Version 1)
Quarter: 2015Q2

REPORT INFORMATION
  Report Type: Spontaneous
  Country: US (occurrence: US)
  Receive Date: 20150402
  Receipt Date: 20150402
  Transmission Date: 20150821
  Serious: No
  Sender: FDA-Public Use
  Company Number: US-SA-2014SA066944

PATIENT
  Age: 6 Year
  Sex: Female

DRUGS (9)
  1. SINGULAIR [Concomitant]
     Active Substance: MONTELUKAST SODIUM
     Indication: HYPERSENSITIVITY
     Route: 065
     Dates: start: 201101
  2. ALLEGRA [Suspect]
     Active Substance: FEXOFENADINE HYDROCHLORIDE
     Indication: HYPERSENSITIVITY
     Dosage: DOSE: 1 TSP DOSE:1 TEASPOON(S)
     Route: 048
     Dates: start: 201101, end: 201404
  3. ZYRTEC [Concomitant]
     Active Substance: CETIRIZINE HYDROCHLORIDE
     Indication: HYPERSENSITIVITY
     Route: 065
     Dates: start: 201405
  4. SINGULAIR [Concomitant]
     Active Substance: MONTELUKAST SODIUM
     Indication: ASTHMA
     Route: 065
     Dates: start: 201101
  5. VITAMINS [Concomitant]
     Active Substance: VITAMINS
     Indication: COELIAC DISEASE
     Dosage: DOSE:1 UNIT(S)
     Route: 065
     Dates: start: 201209
  6. QVAR [Concomitant]
     Active Substance: BECLOMETHASONE DIPROPIONATE
     Indication: HYPERSENSITIVITY
     Dosage: DOSE:2 PUFF(S)
     Route: 065
     Dates: start: 201101
  7. NASONEX [Concomitant]
     Active Substance: MOMETASONE FUROATE
     Indication: HYPERSENSITIVITY
     Dosage: 1 SPRAY/DAY DOSE:1 UNIT(S)
     Route: 065
  8. QVAR [Concomitant]
     Active Substance: BECLOMETHASONE DIPROPIONATE
     Indication: ASTHMA
     Dosage: DOSE:2 PUFF(S)
     Route: 065
     Dates: start: 201101
  9. ALLEGRA [Suspect]
     Active Substance: FEXOFENADINE HYDROCHLORIDE
     Indication: ASTHMA
     Dosage: DOSE: 1 TSP DOSE:1 TEASPOON(S)
     Route: 048
     Dates: start: 201101, end: 201404

REACTIONS (1)
  - Product taste abnormal [Unknown]
